FAERS Safety Report 7473910-9 (Version None)
Quarter: 2011Q2

REPORT INFORMATION
  Report Type: 
  Country: None (occurrence: None)
  Receive Date: 20110511
  Receipt Date: 20110506
  Transmission Date: 20111010
  Serious: Yes (Other)
  Sender: FDA-Public Use
  Company Number: US-PFIZER INC-2011098140

PATIENT
  Sex: Female
  Weight: 79.365 kg

DRUGS (1)
  1. PREPARATION H MEDICATED WIPES [Suspect]
     Indication: HAEMORRHOIDS
     Dosage: UNK
     Dates: start: 20100101

REACTIONS (3)
  - SWELLING [None]
  - HAEMORRHOIDS [None]
  - APPLICATION SITE PAIN [None]
